FAERS Safety Report 8557480-X (Version None)
Quarter: 2012Q3

REPORT INFORMATION
  Report Type: 
  Country: None (occurrence: None)
  Receive Date: 20120801
  Receipt Date: 20120726
  Transmission Date: 20120928
  Serious: Yes (Hospitalization, Other)
  Sender: FDA-Public Use
  Company Number: US-ABBOTT-12P-163-0924390-00

PATIENT
  Sex: Female
  Weight: 68.1 kg

DRUGS (3)
  1. HUMIRA [Suspect]
     Indication: CROHN'S DISEASE
     Dosage: STARTED WITH LOADING DOSE OF 160MG; FOLLOWED BY 80MG 2 WEEKS LATER
     Dates: start: 20111001, end: 20120201
  2. ASACOL [Concomitant]
     Indication: PRODUCT USED FOR UNKNOWN INDICATION
  3. HUMIRA [Suspect]
     Route: 058
     Dates: start: 20120501

REACTIONS (12)
  - BLOOD IRON DECREASED [None]
  - ABDOMINAL PAIN [None]
  - INTESTINAL OBSTRUCTION [None]
  - COLECTOMY [None]
  - HEADACHE [None]
  - INJECTION SITE PRURITUS [None]
  - INJECTION SITE SWELLING [None]
  - DIARRHOEA [None]
  - INJECTION SITE INDURATION [None]
  - MALABSORPTION [None]
  - HAEMATOCHEZIA [None]
  - INJECTION SITE ERYTHEMA [None]
